FAERS Safety Report 14146107 (Version 1)
Quarter: 2017Q4

REPORT INFORMATION
  Report Type: Spontaneous
  Country: US (occurrence: US)
  Receive Date: 20171031
  Receipt Date: 20171031
  Transmission Date: 20180321
  Serious: No
  Sender: FDA-Public Use
  Company Number: US-009507513-1710USA003212

PATIENT
  Sex: Male

DRUGS (2)
  1. M-M-R II [Suspect]
     Active Substance: MEASLES VIRUS STRAIN ENDERS^ ATTENUATED EDMONSTON LIVE ANTIGEN\MUMPS VIRUS STRAIN B LEVEL JERYL LYNN LIVE ANTIGEN\RUBELLA VIRUS STRAIN WISTAR RA 27/3 LIVE ANTIGEN
     Indication: PROPHYLAXIS
     Route: 058
  2. STERILE DILUENT [Suspect]
     Active Substance: WATER

REACTIONS (3)
  - Rubella antibody negative [Not Recovered/Not Resolved]
  - Measles antibody negative [Not Recovered/Not Resolved]
  - Mumps antibody test negative [Not Recovered/Not Resolved]

NARRATIVE: CASE EVENT DATE: 2017
